FAERS Safety Report 4419707-5 (Version None)
Quarter: 2004Q3

REPORT INFORMATION
  Report Type: 
  Country: None (occurrence: None)
  Receive Date: 20040805
  Receipt Date: 20040805
  Transmission Date: 20050211
  Serious: Yes (Hospitalization)
  Sender: FDA-Public Use
  Company Number: None

PATIENT
  Age: 50 Year
  Sex: Female
  Weight: 97.5234 kg

DRUGS (1)
  1. XENADRINE EFX   CYTODYNE [Suspect]
     Indication: WEIGHT CONTROL
     Dosage: 1 2X ADAY

REACTIONS (1)
  - ABDOMINAL PAIN UPPER [None]
